FAERS Safety Report 10043956 (Version 2)
Quarter: 2014Q1

REPORT INFORMATION
  Report Type: Spontaneous
  Country: US (occurrence: US)
  Receive Date: 20140328
  Receipt Date: 20140328
  Transmission Date: 20141002
  Serious: No
  Sender: FDA-Public Use
  Company Number: US-MYLANLABS-2013S1011835

PATIENT
  Age: 63 Year
  Sex: Female
  Weight: 68.04 kg

DRUGS (3)
  1. EMSAM (SELEGILINE TRANSDERMAL SYSTEM) [Suspect]
     Indication: MAJOR DEPRESSION
     Dosage: CHANGED DAILY
     Route: 062
     Dates: start: 20130427
  2. PRILOSEC [Concomitant]
  3. ATIVAN [Concomitant]

REACTIONS (3)
  - Rash [Not Recovered/Not Resolved]
  - Blood glucose decreased [Not Recovered/Not Resolved]
  - Pruritus [Not Recovered/Not Resolved]
